FAERS Safety Report 20913485 (Version 9)
Quarter: 2025Q3

REPORT INFORMATION
  Report Type: Spontaneous
  Country: EU (occurrence: EU)
  Receive Date: 20220603
  Receipt Date: 20250925
  Transmission Date: 20251020
  Serious: Yes (Other)
  Sender: MERCK SHARP & DOHME LLC
  Company Number: None

PATIENT
  Age: 69 Year
  Sex: Male

DRUGS (3)
  1. PEMBROLIZUMAB [Suspect]
     Active Substance: PEMBROLIZUMAB
     Indication: Lung adenocarcinoma stage IV
     Dosage: DOSE DESCRIPTION : 200 MILLIGRAM, Q3W?DAILY DOSE : 9.4 MILLIGRAM?REGIMEN DOSE : 200  MILLIGRAM
     Route: 042
     Dates: start: 20210325, end: 2021
  2. CISPLATIN [Suspect]
     Active Substance: CISPLATIN
     Indication: Lung adenocarcinoma stage IV
     Dosage: DOSE DESCRIPTION : 75 MG/M2, EVERY 21 DAYS?DAILY DOSE : 3.525 MILLIGRAM/SQ. METER?REGIMEN DOSE : ...
     Route: 042
     Dates: start: 20210325
  3. PEMETREXED [Suspect]
     Active Substance: PEMETREXED
     Indication: Lung adenocarcinoma stage IV
     Dosage: DOSE DESCRIPTION : 500 MG/M2, EVERY 21 DAYS?DAILY DOSE : 23.5 MILLIGRAM/SQ. METER?REGIMEN DOSE : ...
     Route: 042
     Dates: start: 20210325

REACTIONS (5)
  - Neutropenia [Unknown]
  - Anaemia [Unknown]
  - Fatigue [Recovering/Resolving]
  - Nausea [Recovering/Resolving]
  - Decreased appetite [Recovering/Resolving]

NARRATIVE: CASE EVENT DATE: 20210101
